FAERS Safety Report 10345560 (Version 1)
Quarter: 2014Q3

REPORT INFORMATION
  Report Type: Spontaneous
  Country: US (occurrence: None)
  Receive Date: 20140725
  Receipt Date: 20140725
  Transmission Date: 20150326
  Serious: Yes (Other)
  Sender: FDA-Public Use
  Company Number: None

PATIENT
  Age: 69 Year
  Sex: Female

DRUGS (2)
  1. ARIMIDEX [Suspect]
     Active Substance: ANASTROZOLE
     Indication: BREAST CANCER
     Route: 048
  2. INERFERON ALPHA 2B EYE DROPS [Concomitant]

REACTIONS (4)
  - Tooth disorder [None]
  - Tooth fracture [None]
  - Tooth extraction [None]
  - Blood calcium decreased [None]

NARRATIVE: CASE EVENT DATE: 20130704
